FAERS Safety Report 8602346-X (Version None)
Quarter: 2012Q3

REPORT INFORMATION
  Report Type: 
  Country: None (occurrence: None)
  Receive Date: 20120817
  Receipt Date: 20120808
  Transmission Date: 20120928
  Serious: Yes (Hospitalization)
  Sender: FDA-Public Use
  Company Number: FR-ASTRAZENECA-2012SE56415

PATIENT
  Age: 91 Year
  Sex: Female

DRUGS (5)
  1. ASPIRIN [Concomitant]
     Route: 048
  2. NEXIUM [Suspect]
     Route: 048
     Dates: end: 20120709
  3. ACETAMINOPHEN [Suspect]
     Route: 048
     Dates: start: 20120625, end: 20120709
  4. OXAZEPAM [Concomitant]
     Route: 048
     Dates: start: 20120621
  5. LERCANIDIPINE [Concomitant]
     Route: 048
     Dates: start: 20120621

REACTIONS (5)
  - GAMMA-GLUTAMYLTRANSFERASE INCREASED [None]
  - BLOOD ALKALINE PHOSPHATASE INCREASED [None]
  - ASPARTATE AMINOTRANSFERASE INCREASED [None]
  - TRANSAMINASES INCREASED [None]
  - ALANINE AMINOTRANSFERASE INCREASED [None]
